FAERS Safety Report 18484525 (Version 1)
Quarter: 2020Q4

REPORT INFORMATION
  Report Type: Spontaneous
  Country: RU (occurrence: RU)
  Receive Date: 20201110
  Receipt Date: 20201110
  Transmission Date: 20210114
  Serious: Yes (Hospitalization, Other)
  Sender: FDA-Public Use
  Company Number: RU-AMGEN-RUSSP2020178707

PATIENT

DRUGS (2)
  1. PEGFILGRASTIM [Suspect]
     Active Substance: PEGFILGRASTIM
     Indication: AUTOLOGOUS HAEMATOPOIETIC STEM CELL TRANSPLANT
     Dosage: 6 MILLIGRAM (ON DAY 4 OR 5 AFTER THE INFUSION OF THAWED CELL SUSPENSION)
     Route: 058
  2. MELPHALAN. [Concomitant]
     Active Substance: MELPHALAN
     Dosage: UNK

REACTIONS (4)
  - Off label use [Unknown]
  - Febrile neutropenia [Unknown]
  - Thrombocytopenia [Unknown]
  - Unevaluable event [Unknown]
